FAERS Safety Report 6293642-2 (Version None)
Quarter: 2009Q3

REPORT INFORMATION
  Report Type: 
  Country: None (occurrence: None)
  Receive Date: 20090803
  Receipt Date: 20090722
  Transmission Date: 20100115
  Serious: Yes (Hospitalization)
  Sender: FDA-Public Use
  Company Number: US-BAYER-200927678NA

PATIENT
  Age: 38 Year
  Sex: Female

DRUGS (1)
  1. BETASERON [Suspect]
     Indication: RELAPSING-REMITTING MULTIPLE SCLEROSIS
     Dosage: TOTAL DAILY DOSE: 4 MIU
     Route: 058
     Dates: start: 20090624

REACTIONS (2)
  - CHEST DISCOMFORT [None]
  - DYSPNOEA [None]
